FAERS Safety Report 25941691 (Version 2)
Quarter: 2025Q4

REPORT INFORMATION
  Report Type: Spontaneous
  Country: US (occurrence: US)
  Receive Date: 20251020
  Receipt Date: 20251030
  Transmission Date: 20260118
  Serious: No
  Sender: LUPIN
  Company Number: US-LUPIN PHARMACEUTICALS INC.-2025-09359

PATIENT
  Age: 63 Year
  Weight: 79.365 kg

DRUGS (4)
  1. ALBUTEROL SULFATE [Suspect]
     Active Substance: ALBUTEROL SULFATE
     Indication: Lung disorder
     Dosage: 6 TO 12 PUFF EVERY DAY, PRN
  2. ALBUTEROL SULFATE [Suspect]
     Active Substance: ALBUTEROL SULFATE
     Indication: Asthma
     Dosage: 6 TO 12 PUFF EVERY DAY, PRN
  3. ALBUTEROL SULFATE [Suspect]
     Active Substance: ALBUTEROL SULFATE
     Dosage: 6 TO 12 PUFF EVERY DAY, PRN
  4. ALBUTEROL SULFATE [Suspect]
     Active Substance: ALBUTEROL SULFATE
     Dosage: 6 TO 12 PUFF EVERY DAY, PRN

REACTIONS (3)
  - Device deposit issue [Unknown]
  - Wrong technique in product usage process [Unknown]
  - Off label use [Unknown]
